FAERS Safety Report 17275404 (Version 1)
Quarter: 2020Q1

REPORT INFORMATION
  Report Type: Spontaneous
  Country: GB (occurrence: GB)
  Receive Date: 20200116
  Receipt Date: 20200116
  Transmission Date: 20200409
  Serious: Yes (Hospitalization, Other)
  Sender: FDA-Public Use
  Company Number: GB-AUROBINDO-AUR-APL-2020-002741

PATIENT
  Age: 33 Year
  Sex: Female

DRUGS (4)
  1. NUROFEN PLUS [Suspect]
     Active Substance: CODEINE PHOSPHATE\IBUPROFEN
     Indication: ANXIETY
     Dosage: UNK 32 TABLETS A DAY
     Route: 065
  2. IBUPROFEN. [Suspect]
     Active Substance: IBUPROFEN
     Indication: PRODUCT USED FOR UNKNOWN INDICATION
     Dosage: UNK
     Route: 065
  3. CODEINE PHOSPHATE [Suspect]
     Active Substance: CODEINE PHOSPHATE
     Indication: PRODUCT USED FOR UNKNOWN INDICATION
     Dosage: UNK
     Route: 065
  4. NUROFEN PLUS [Suspect]
     Active Substance: CODEINE PHOSPHATE\IBUPROFEN
     Indication: EUPHORIC MOOD

REACTIONS (23)
  - Rhabdomyolysis [Recovered/Resolved]
  - Cortisol increased [Recovered/Resolved]
  - Faecaloma [Recovered/Resolved]
  - Lethargy [Recovered/Resolved]
  - Hypernatraemia [Recovered/Resolved]
  - Microcytic anaemia [Recovered/Resolved]
  - Oxygen consumption increased [Recovered/Resolved]
  - Malaise [Recovered/Resolved]
  - Fatigue [Recovered/Resolved]
  - Hypokalaemia [Recovered/Resolved]
  - Hypertension [Recovered/Resolved]
  - Tachycardia [Recovered/Resolved]
  - Renal tubular acidosis [Recovered/Resolved]
  - Neutrophilia [Recovered/Resolved]
  - Drug abuse [Recovered/Resolved]
  - Altered state of consciousness [Recovered/Resolved]
  - Constipation [Recovered/Resolved]
  - Hyperreflexia [Recovered/Resolved]
  - Blood lactic acid increased [Recovered/Resolved]
  - Sepsis [Recovered/Resolved]
  - Acidosis hyperchloraemic [Recovered/Resolved]
  - Hypophosphataemia [Recovered/Resolved]
  - Hypercalcaemia [Recovered/Resolved]
